FAERS Safety Report 25015735 (Version 1)
Quarter: 2025Q1

REPORT INFORMATION
  Report Type: Spontaneous
  Country: US (occurrence: None)
  Receive Date: 20250227
  Receipt Date: 20250227
  Transmission Date: 20250409
  Serious: No
  Sender: Alvotech
  Company Number: US-ALVOTECHPMS-2025-ALVOTECHPMS-003198

PATIENT
  Age: 63 Year
  Sex: Female
  Weight: 150 kg

DRUGS (8)
  1. SIMLANDI [Suspect]
     Active Substance: ADALIMUMAB-RYVK
     Indication: Psoriatic arthropathy
     Route: 058
     Dates: start: 20250123
  2. HYDROXYCHLOROQUINE [Concomitant]
     Active Substance: HYDROXYCHLOROQUINE
     Dosage: 200 MG, 1.5 TABLETS DAILY
  3. FAMOTIDINE [Concomitant]
     Active Substance: FAMOTIDINE
     Dosage: 20 MG, 1 TABLET TWICE DAILY
  4. LEVOTHYROXINE [Concomitant]
     Active Substance: LEVOTHYROXINE
     Dosage: 150 MCG, 1?TABLET DAILY
  5. SERTRALINE HYDROCHLORIDE [Concomitant]
     Active Substance: SERTRALINE HYDROCHLORIDE
     Dosage: 100 MG, 1 TABLET DAILY
  6. EVOLOCUMAB [Concomitant]
     Active Substance: EVOLOCUMAB
  7. CEVIMELINE HYDROCHLORIDE [Concomitant]
     Active Substance: CEVIMELINE HYDROCHLORIDE
     Dosage: 30 MG, 1 TABLET BY MOUTH THREE TIMES DAILY PER PATIENT.
     Route: 048
  8. Palatyclogir HCL [Concomitant]
     Dosage: 500 MG, 1?TABLET DAILY

REACTIONS (4)
  - Injection site mass [Unknown]
  - Injection site rash [Unknown]
  - Injection site pruritus [Unknown]
  - Injection site erythema [Unknown]

NARRATIVE: CASE EVENT DATE: 20250213
